FAERS Safety Report 9006178 (Version 1)
Quarter: 2013Q1

REPORT INFORMATION
  Report Type: Spontaneous
  Country: US (occurrence: US)
  Receive Date: 20130110
  Receipt Date: 20130110
  Transmission Date: 20140127
  Serious: Yes (Other)
  Sender: FDA-Public Use
  Company Number: US-009507513-0907USA03581

PATIENT
  Age: 68 Year
  Sex: Female
  Weight: 72.58 kg

DRUGS (2)
  1. SINGULAIR [Suspect]
     Indication: MULTIPLE ALLERGIES
     Dosage: 1 DF, QD
     Route: 048
     Dates: start: 20080909
  2. SINGULAIR [Suspect]
     Indication: MIGRAINE

REACTIONS (2)
  - Dizziness [Unknown]
  - Vomiting [Unknown]
